FAERS Safety Report 21866731 (Version 2)
Quarter: 2023Q1

REPORT INFORMATION
  Report Type: Spontaneous
  Country: MX (occurrence: MX)
  Receive Date: 20230116
  Receipt Date: 20230117
  Transmission Date: 20230417
  Serious: Yes (Other)
  Sender: FDA-Public Use
  Company Number: MX-JNJFOC-20230121512

PATIENT
  Age: 10 Year
  Sex: Male

DRUGS (3)
  1. CHILDRENS MOTRIN [Suspect]
     Active Substance: IBUPROFEN
     Indication: Pyrexia
     Route: 065
     Dates: start: 202205, end: 2022
  2. CHILDRENS MOTRIN [Suspect]
     Active Substance: IBUPROFEN
     Indication: Illness
     Route: 065
     Dates: start: 202205, end: 2022
  3. CHILDRENS MOTRIN [Suspect]
     Active Substance: IBUPROFEN
     Route: 065
     Dates: start: 202207, end: 2022

REACTIONS (7)
  - Hallucination, visual [Unknown]
  - Delirium [Unknown]
  - Crying [Unknown]
  - Abnormal behaviour [Unknown]
  - Tremor [Unknown]
  - Chills [Unknown]
  - Fear [Unknown]

NARRATIVE: CASE EVENT DATE: 20220501
